FAERS Safety Report 22284879 (Version 1)
Quarter: 2023Q2

REPORT INFORMATION
  Report Type: Spontaneous
  Country: US (occurrence: US)
  Receive Date: 20230504
  Receipt Date: 20230504
  Transmission Date: 20230721
  Serious: No
  Sender: FDA-Public Use
  Company Number: US-SANOFI-01596737

PATIENT
  Age: 63 Year
  Sex: Female

DRUGS (4)
  1. DUPIXENT [Suspect]
     Active Substance: DUPILUMAB
     Indication: Eczema
     Dosage: 300 MG, QOW
     Dates: start: 20230429
  2. OMEPRAZOLE [Concomitant]
     Active Substance: OMEPRAZOLE
     Indication: Abdominal discomfort
     Dosage: UNK
  3. BENADRYL [Concomitant]
     Active Substance: DIPHENHYDRAMINE HYDROCHLORIDE
     Indication: Sleep disorder
     Dosage: UNK
  4. ADVIL [Concomitant]
     Active Substance: IBUPROFEN
     Dosage: UNK UNK, PRN

REACTIONS (3)
  - Sneezing [Recovering/Resolving]
  - Rhinorrhoea [Recovering/Resolving]
  - Headache [Recovering/Resolving]

NARRATIVE: CASE EVENT DATE: 20230430
